FAERS Safety Report 14194389 (Version 1)
Quarter: 2017Q4

REPORT INFORMATION
  Report Type: Spontaneous
  Country: US (occurrence: US)
  Receive Date: 20171115
  Receipt Date: 20171115
  Transmission Date: 20180321
  Serious: Yes (Other)
  Sender: FDA-Public Use
  Company Number: None

PATIENT
  Sex: Male
  Weight: 90 kg

DRUGS (2)
  1. CRESTOR [Concomitant]
     Active Substance: ROSUVASTATIN CALCIUM
  2. AZITHROMYCIN 500 MG [Suspect]
     Active Substance: AZITHROMYCIN ANHYDROUS
     Indication: PNEUMONIA
     Dosage: ?          QUANTITY:5 TABLET(S);?
     Route: 048
     Dates: start: 20171105, end: 20171108

REACTIONS (1)
  - Haematuria [None]

NARRATIVE: CASE EVENT DATE: 20171107
